FAERS Safety Report 23972017 (Version 2)
Quarter: 2025Q4

REPORT INFORMATION
  Report Type: Report from Study
  Country: EU (occurrence: EU)
  Receive Date: 20240613
  Receipt Date: 20251128
  Transmission Date: 20260117
  Serious: Yes (Other)
  Sender: EXELIXIS
  Company Number: EU-IPSEN Group, Research and Development-2020-17952

PATIENT

DRUGS (42)
  1. CABOZANTINIB [Suspect]
     Active Substance: CABOZANTINIB
     Indication: Renal cell carcinoma
     Dosage: 60 MG DAILY
     Route: 048
     Dates: start: 20200831, end: 20200928
  2. CABOZANTINIB [Suspect]
     Active Substance: CABOZANTINIB
     Dosage: 40 MG DAILY
     Route: 048
     Dates: start: 20200929, end: 20201012
  3. CABOZANTINIB [Suspect]
     Active Substance: CABOZANTINIB
     Dosage: 20 MG DAILY
     Route: 048
     Dates: start: 20201116, end: 20220627
  4. CABOZANTINIB [Suspect]
     Active Substance: CABOZANTINIB
     Dosage: 20 MG DAILY
     Route: 048
     Dates: start: 20220711, end: 20240527
  5. CABOZANTINIB [Suspect]
     Active Substance: CABOZANTINIB
     Dosage: 20 MG, QD
     Route: 048
     Dates: start: 20240611, end: 20250112
  6. CABOZANTINIB [Suspect]
     Active Substance: CABOZANTINIB
     Dosage: 20 MG, QD
     Route: 048
     Dates: start: 20250203, end: 20250315
  7. CABOZANTINIB [Suspect]
     Active Substance: CABOZANTINIB
     Dosage: 20 MG, QD
     Route: 048
     Dates: start: 202503, end: 20250602
  8. CABOZANTINIB [Suspect]
     Active Substance: CABOZANTINIB
     Dosage: 20 MG, QD
     Route: 048
     Dates: start: 20250908
  9. AMLODIPINE BESYLATE [Concomitant]
     Active Substance: AMLODIPINE BESYLATE
     Indication: Hypertension
     Dosage: 5 MG DAILY
     Route: 048
     Dates: start: 20200504
  10. LEVOTHYROXINE [Concomitant]
     Active Substance: LEVOTHYROXINE
     Indication: Hypothyroidism
     Dosage: 100 MCG DAILY
     Dates: start: 20151228
  11. MOVICOL [Concomitant]
     Active Substance: POLYETHYLENE GLYCOL 3350\POTASSIUM CHLORIDE\SODIUM BICARBONATE\SODIUM CHLORIDE
     Indication: Constipation
     Dosage: UNKNOWN DOSE, DAILY
     Route: 048
     Dates: start: 20181210
  12. SODIUM PICOSULFATE [Concomitant]
     Active Substance: SODIUM PICOSULFATE
     Indication: Constipation
     Dosage: 10 DR DAILY
     Route: 048
     Dates: start: 20200817
  13. ACETAMINOPHEN [Concomitant]
     Active Substance: ACETAMINOPHEN
     Indication: Headache
     Dosage: 1 G 4/D
     Route: 048
     Dates: start: 20200214
  14. DICLOFENAC [Concomitant]
     Active Substance: DICLOFENAC
     Indication: Headache
     Dosage: 50 MG PRN
     Route: 048
     Dates: start: 20200214
  15. PRAVASTATIN [Concomitant]
     Active Substance: PRAVASTATIN
     Indication: Hypercholesterolaemia
     Dosage: 40 MG DAILY
     Route: 048
     Dates: start: 20190607
  16. VENLAFAXINE HYDROCHLORIDE [Concomitant]
     Active Substance: VENLAFAXINE HYDROCHLORIDE
     Indication: Anxiety
     Dosage: 37.5 MG, QD
     Route: 048
     Dates: start: 20181210
  17. KEPPRA [Concomitant]
     Active Substance: LEVETIRACETAM
     Indication: Epilepsy
     Dosage: 1000 MG TWICE DAILY
     Route: 048
     Dates: start: 20200128
  18. Colofiber [Concomitant]
     Indication: Constipation
     Dosage: 7 G, QD
     Route: 048
     Dates: start: 20201109
  19. Colofiber [Concomitant]
     Indication: Constipation
     Dosage: UNK
     Route: 048
     Dates: start: 20230703
  20. NITROFURANTOIN [Concomitant]
     Active Substance: NITROFURANTOIN
     Indication: Urinary tract disorder prophylaxis
     Dosage: 100 MG, TID
     Route: 048
     Dates: start: 20210523, end: 20210523
  21. NITROFURANTOIN [Concomitant]
     Active Substance: NITROFURANTOIN
     Dosage: 50 MG, 0.25 DAY
     Route: 048
     Dates: start: 20240620, end: 20240627
  22. NITROFURANTOIN [Concomitant]
     Active Substance: NITROFURANTOIN
     Dosage: 50 MG, BID
     Route: 048
     Dates: start: 202409, end: 202409
  23. NITROFURANTOIN [Concomitant]
     Active Substance: NITROFURANTOIN
     Dosage: 50 UNK, QD
     Route: 048
     Dates: start: 202501, end: 202501
  24. FOSFOMYCIN TROMETHAMINE [Concomitant]
     Active Substance: FOSFOMYCIN TROMETHAMINE
     Indication: Cystitis
     Dosage: 3000 MG, DAILY
     Route: 048
     Dates: start: 20200914, end: 20200914
  25. FOSFOMYCIN TROMETHAMINE [Concomitant]
     Active Substance: FOSFOMYCIN TROMETHAMINE
     Indication: Urinary tract infection
     Dosage: 3000 MG, DAILY
     Route: 048
     Dates: start: 20240527
  26. Pantomed [Concomitant]
     Indication: Prophylaxis
     Dosage: 40 MG, QD
     Route: 048
     Dates: start: 20201009, end: 20210905
  27. Pantomed [Concomitant]
     Dosage: 20 MG, QD
     Route: 048
     Dates: start: 20210906
  28. CHOLECALCIFEROL [Concomitant]
     Active Substance: CHOLECALCIFEROL
     Indication: Vitamin D deficiency
     Dosage: 250000 EQ, Q2WEEKS
     Route: 048
     Dates: start: 20221226, end: 2023
  29. CHOLECALCIFEROL [Concomitant]
     Active Substance: CHOLECALCIFEROL
     Dosage: 250000 EQ, Q2WEEKS
     Route: 048
     Dates: start: 20230703
  30. INNOHEP [Concomitant]
     Active Substance: TINZAPARIN SODIUM
     Indication: Pulmonary embolism
     Dosage: DAILY
     Route: 058
     Dates: start: 20221226
  31. EDOXABAN TOSYLATE [Concomitant]
     Active Substance: EDOXABAN TOSYLATE
     Indication: Pulmonary embolism
     Dosage: DAILY
     Route: 048
     Dates: start: 20221226
  32. QUESTRAN [Concomitant]
     Active Substance: CHOLESTYRAMINE
     Dosage: BID
     Route: 048
     Dates: start: 20230102
  33. QUESTRAN [Concomitant]
     Active Substance: CHOLESTYRAMINE
     Dosage: BID
     Dates: start: 20230102
  34. FRAMYCETIN SULFATE\NAPHAZOLINE NITRATE\PREDNISOLONE ACETATE [Concomitant]
     Active Substance: FRAMYCETIN SULFATE\NAPHAZOLINE NITRATE\PREDNISOLONE ACETATE
     Indication: Nasopharyngitis
     Dosage: BID
     Route: 048
     Dates: start: 20221226
  35. Cough syrup e [Concomitant]
     Indication: Nasopharyngitis
     Dosage: AS NEEDED
     Route: 048
     Dates: start: 20221226
  36. MAGNESIUM SALICYLATE [Concomitant]
     Active Substance: MAGNESIUM SALICYLATE
     Indication: Muscle spasms
     Dosage: AS NEEDED
     Route: 048
     Dates: start: 202303
  37. DAFALGAN [Concomitant]
     Active Substance: ACETAMINOPHEN
     Indication: Headache
     Dosage: 1 G
     Route: 048
     Dates: start: 20220905
  38. Steovit forte [Concomitant]
     Indication: Hypocalcaemia
     Dosage: 1000/800 OTHER MG/U
     Route: 048
     Dates: start: 20240115
  39. MOTILIUM [Concomitant]
     Active Substance: DOMPERIDONE
     Indication: Dyspepsia
     Dosage: ASNECESSARY
     Route: 048
     Dates: start: 202203
  40. QUININE SULFATE [Concomitant]
     Active Substance: QUININE SULFATE
     Indication: Muscle spasms
     Dosage: UNK
     Route: 048
     Dates: start: 20220627, end: 202207
  41. QUININE SULFATE [Concomitant]
     Active Substance: QUININE SULFATE
     Indication: Muscle spasms
     Dosage: UNK
     Route: 048
     Dates: start: 202207, end: 20240115
  42. LEVOTHYROXINE [Concomitant]
     Active Substance: LEVOTHYROXINE
     Dosage: 125 MCG 1 IN 2 DAYS
     Route: 048
     Dates: start: 20190517

REACTIONS (19)
  - Hepatitis [Not Recovered/Not Resolved]
  - Dermatitis allergic [Recovered/Resolved]
  - Pruritus [Not Recovered/Not Resolved]
  - Dry mouth [Recovered/Resolved]
  - Myalgia [Not Recovered/Not Resolved]
  - Oedema peripheral [Recovered/Resolved]
  - Hepatic function abnormal [Recovered/Resolved]
  - Metatarsalgia [Recovered/Resolved]
  - Pericoronitis [Recovered/Resolved]
  - Tooth infection [Recovered/Resolved]
  - Dysgeusia [Recovered/Resolved]
  - Nausea [Recovered/Resolved]
  - Decreased appetite [Recovered/Resolved]
  - Fatigue [Recovering/Resolving]
  - Rash [Recovered/Resolved]
  - Pain in extremity [Not Recovered/Not Resolved]
  - Nausea [Recovered/Resolved]
  - Dizziness [Recovered/Resolved]
  - Diarrhoea [Recovered/Resolved]

NARRATIVE: CASE EVENT DATE: 20200914
